FAERS Safety Report 12632072 (Version 2)
Quarter: 2016Q3

REPORT INFORMATION
  Report Type: Spontaneous
  Country: US (occurrence: US)
  Receive Date: 20160808
  Receipt Date: 20160808
  Transmission Date: 20161109
  Serious: No
  Sender: FDA-Public Use
  Company Number: US-BEH-2016061847

PATIENT
  Sex: Female
  Weight: 87 kg

DRUGS (26)
  1. VITAMIN D [Concomitant]
     Active Substance: CHOLECALCIFEROL
  2. FOLIC ACID. [Concomitant]
     Active Substance: FOLIC ACID
  3. PROMETHAZINE [Concomitant]
     Active Substance: PROMETHAZINE\PROMETHAZINE HYDROCHLORIDE
  4. DIPHENHYDRAMINE. [Concomitant]
     Active Substance: DIPHENHYDRAMINE
  5. DICYCLOMINE [Concomitant]
     Active Substance: DICYCLOMINE HYDROCHLORIDE
  6. CALCIUM+D [Concomitant]
     Active Substance: CALCIUM\VITAMIN D
  7. HYDROCODONE-ACETAMINOPHEN [Concomitant]
     Active Substance: ACETAMINOPHEN\HYDROCODONE
  8. LASIX [Concomitant]
     Active Substance: FUROSEMIDE
  9. DILTIAZEM ER [Concomitant]
     Active Substance: DILTIAZEM
  10. ZYRTEC [Concomitant]
     Active Substance: CETIRIZINE HYDROCHLORIDE
  11. CHOLECALCIFEROL [Concomitant]
     Active Substance: CHOLECALCIFEROL
  12. HIZENTRA [Suspect]
     Active Substance: HUMAN IMMUNOGLOBULIN G
     Indication: IMMUNODEFICIENCY COMMON VARIABLE
     Route: 058
  13. ACETAMINOPHEN. [Concomitant]
     Active Substance: ACETAMINOPHEN
  14. EPIPEN [Concomitant]
     Active Substance: EPINEPHRINE
  15. L-M-X [Concomitant]
  16. CYCLOBENZAPRINE [Concomitant]
     Active Substance: CYCLOBENZAPRINE
  17. COUMADIN [Concomitant]
     Active Substance: WARFARIN SODIUM
  18. OMEPRAZOLE. [Concomitant]
     Active Substance: OMEPRAZOLE
  19. OMEGA-3-FISH OIL-VIT D3 [Concomitant]
  20. SINEMET CR [Concomitant]
     Active Substance: CARBIDOPA\LEVODOPA
  21. LYRICA [Concomitant]
     Active Substance: PREGABALIN
  22. POTASSIUM CHLORIDE. [Concomitant]
     Active Substance: POTASSIUM CHLORIDE
  23. DULOXETINE. [Concomitant]
     Active Substance: DULOXETINE
  24. CLONIDINE. [Concomitant]
     Active Substance: CLONIDINE
  25. FOLTX [Concomitant]
     Active Substance: CYANOCOBALAMIN CO-57\FOLIC ACID\PYRIDOXINE HYDROCHLORIDE
  26. XANAX [Concomitant]
     Active Substance: ALPRAZOLAM

REACTIONS (1)
  - Accidental overdose [Unknown]
